FAERS Safety Report 15091807 (Version 1)
Quarter: 2018Q2

REPORT INFORMATION
  Report Type: Spontaneous
  Country: US (occurrence: US)
  Receive Date: 20180629
  Receipt Date: 20180629
  Transmission Date: 20180711
  Serious: No
  Sender: FDA-Public Use
  Company Number: US-AMGEN-USASP2014079969

PATIENT
  Age: 67 Year
  Sex: Female

DRUGS (2)
  1. PROLIA [Suspect]
     Active Substance: DENOSUMAB
     Indication: OSTEOPOROSIS POSTMENOPAUSAL
     Dosage: UNK
     Route: 065
     Dates: start: 20140722
  2. PROLIA [Suspect]
     Active Substance: DENOSUMAB

REACTIONS (4)
  - Musculoskeletal stiffness [Unknown]
  - Arthralgia [Unknown]
  - Jaw disorder [Unknown]
  - Adverse event [Unknown]

NARRATIVE: CASE EVENT DATE: 201408
